FAERS Safety Report 20866098 (Version 1)
Quarter: 2022Q2

REPORT INFORMATION
  Report Type: Spontaneous
  Country: US (occurrence: None)
  Receive Date: 20220523
  Receipt Date: 20220523
  Transmission Date: 20220720
  Serious: No
  Sender: FDA-Public Use
  Company Number: None

PATIENT
  Age: 83 Year
  Sex: Male
  Weight: 73.21 kg

DRUGS (9)
  1. IBRANCE [Suspect]
     Active Substance: PALBOCICLIB
     Indication: Malignant connective tissue neoplasm
     Dosage: OTHER FREQUENCY : 21D ON7D OFF;?
     Route: 048
  2. AMLODIPINE [Concomitant]
     Active Substance: AMLODIPINE BESYLATE
  3. CLARITIN [Concomitant]
     Active Substance: LORATADINE
  4. LATANOPROST [Concomitant]
     Active Substance: LATANOPROST
  5. METOPROLOL [Concomitant]
  6. PRAVASTATIN [Concomitant]
     Active Substance: PRAVASTATIN
  7. PREDNISONE [Concomitant]
     Active Substance: PREDNISONE
  8. TYLENOL [Concomitant]
  9. VALSARTAN [Concomitant]
     Active Substance: VALSARTAN

REACTIONS (2)
  - Drug ineffective [None]
  - Renal disorder [None]
